FAERS Safety Report 5165995-X (Version None)
Quarter: 2006Q4

REPORT INFORMATION
  Report Type: 
  Country: None (occurrence: None)
  Receive Date: 20061128
  Receipt Date: 20061116
  Transmission Date: 20070319
  Serious: Yes (Other)
  Sender: FDA-Public Use
  Company Number: 2006BI014066

PATIENT
  Age: 56 Year
  Sex: Female
  Weight: 74.8435 kg

DRUGS (11)
  1. NATALIZUMAB [Suspect]
     Indication: MULTIPLE SCLEROSIS
     Dosage: 300 MG; QM; IV
     Route: 042
     Dates: start: 20050210, end: 20050210
  2. NATALIZUMAB [Suspect]
     Indication: MULTIPLE SCLEROSIS
     Dosage: 300 MG; QM; IV
     Route: 042
     Dates: start: 20060831, end: 20060928
  3. REMERON [Concomitant]
  4. BACLOFEN [Concomitant]
  5. PREDNISONE TAB [Concomitant]
  6. AMANTADINE HCL [Concomitant]
  7. OXYTROL [Concomitant]
  8. VITAMIN CAP [Concomitant]
  9. COD LIVER OIL [Concomitant]
  10. FISH OIL [Concomitant]
  11. EVENING PRIMROSE OIL [Concomitant]

REACTIONS (2)
  - ANAPHYLACTIC SHOCK [None]
  - INFUSION RELATED REACTION [None]
